FAERS Safety Report 5905696-0 (Version None)
Quarter: 2008Q4

REPORT INFORMATION
  Report Type: 
  Country: None (occurrence: None)
  Receive Date: 20081002
  Receipt Date: 20080929
  Transmission Date: 20090506
  Serious: Yes (Other)
  Sender: FDA-Public Use
  Company Number: US-BAYER-200812513BCC

PATIENT
  Sex: Female
  Weight: 52 kg

DRUGS (1)
  1. VANQUISH CAPLETS [Suspect]
     Indication: DRUG USE FOR UNKNOWN INDICATION
     Route: 048
     Dates: start: 20080616, end: 20080616

REACTIONS (3)
  - ANALGESIC DRUG LEVEL INCREASED [None]
  - NAUSEA [None]
  - VOMITING [None]
